FAERS Safety Report 6356253-6 (Version None)
Quarter: 2009Q3

REPORT INFORMATION
  Report Type: 
  Country: None (occurrence: None)
  Receive Date: 20090915
  Receipt Date: 20090909
  Transmission Date: 20100115
  Serious: Yes (Life-Threatening, Other)
  Sender: FDA-Public Use
  Company Number: FR-CELGENEUS-056-21880-09070192

PATIENT
  Sex: Male

DRUGS (3)
  1. REVLIMID [Suspect]
     Route: 048
     Dates: start: 20081119, end: 20090602
  2. REVLIMID [Suspect]
     Route: 048
  3. EXJADE [Concomitant]
     Dosage: 3 CAPSULES
     Route: 065
     Dates: start: 20071001

REACTIONS (4)
  - BLISTER [None]
  - CANDIDA SEPSIS [None]
  - PLATELET COUNT DECREASED [None]
  - WHITE BLOOD CELL COUNT DECREASED [None]
